FAERS Safety Report 13732368 (Version 1)
Quarter: 2017Q3

REPORT INFORMATION
  Report Type: Spontaneous
  Country: US (occurrence: US)
  Receive Date: 20170707
  Receipt Date: 20170707
  Transmission Date: 20171127
  Serious: No
  Sender: FDA-Public Use
  Company Number: US-SA-2017SA097617

PATIENT
  Sex: Female

DRUGS (1)
  1. DUPIXENT [Suspect]
     Active Substance: DUPILUMAB
     Indication: ECZEMA
     Dosage: FREQUENCY EVERY 2 WEEKS.
     Route: 065

REACTIONS (6)
  - Erythema [Unknown]
  - Underdose [Unknown]
  - Injection site pain [Unknown]
  - Eczema [Unknown]
  - Thermal burn [Unknown]
  - Burning sensation [Unknown]
